FAERS Safety Report 4735477-5 (Version None)
Quarter: 2005Q3

REPORT INFORMATION
  Report Type: 
  Country: None (occurrence: None)
  Receive Date: 20050805
  Receipt Date: 20050421
  Transmission Date: 20060218
  Serious: Yes (Life-Threatening)
  Sender: FDA-Public Use
  Company Number: 2005AP02478

PATIENT
  Age: 66 Year
  Sex: Male

DRUGS (5)
  1. PROPOFOL [Suspect]
     Indication: SENSORY DISTURBANCE
  2. ALFENTANIL [Suspect]
     Indication: SENSORY DISTURBANCE
  3. FENTANYL [Suspect]
     Indication: SLEEP DISORDER
  4. MIDAZOLAM HCL [Suspect]
     Indication: SLEEP DISORDER
  5. ROCURONIUM BROMIDE [Suspect]
     Indication: SENSORY DISTURBANCE

REACTIONS (7)
  - ANAPHYLACTIC REACTION [None]
  - CARDIAC ARREST [None]
  - CYANOSIS [None]
  - ELECTROMECHANICAL DISSOCIATION [None]
  - HYPOTENSION [None]
  - HYPOXIA [None]
  - VENTRICULAR FIBRILLATION [None]
